FAERS Safety Report 6697773-4 (Version None)
Quarter: 2010Q2

REPORT INFORMATION
  Report Type: 
  Country: None (occurrence: None)
  Receive Date: 20100423
  Receipt Date: 20100413
  Transmission Date: 20101027
  Serious: Yes (Hospitalization)
  Sender: FDA-Public Use
  Company Number: SP02883

PATIENT
  Age: 62 Year
  Sex: Male
  Weight: 93 kg

DRUGS (5)
  1. MOVIPREP [Suspect]
     Indication: BOWEL PREPARATION
     Dosage: (2 LIT,SPLIT DOSE),ORAL
     Route: 048
     Dates: start: 20100328, end: 20100329
  2. ACETYL SALICYLIC ACID [Suspect]
     Dosage: 14.2857 MG (50 MG,2 IN 1 WK),ORAL
     Route: 048
  3. METFORMIN [Concomitant]
  4. METOPROLOL [Concomitant]
  5. CAPTOPRIL AND HYDROCHLOROTHIAZIDE [Concomitant]

REACTIONS (3)
  - DIVERTICULUM INTESTINAL HAEMORRHAGIC [None]
  - GENERAL PHYSICAL HEALTH DETERIORATION [None]
  - HAEMOGLOBIN DECREASED [None]
